FAERS Safety Report 23943858 (Version 1)
Quarter: 2024Q2

REPORT INFORMATION
  Report Type: Spontaneous
  Country: US (occurrence: US)
  Receive Date: 20240606
  Receipt Date: 20240606
  Transmission Date: 20240715
  Serious: Yes (Other)
  Sender: FDA-Public Use
  Company Number: US-SPECGX-T202401217

PATIENT
  Age: 42 Year
  Sex: Female
  Weight: 64 kg

DRUGS (53)
  1. METHADONE [Suspect]
     Active Substance: METHADONE HYDROCHLORIDE
     Indication: Pain
     Dosage: 10 MILLIGRAM, QD (DAY 1)
     Route: 048
  2. METHADONE [Suspect]
     Active Substance: METHADONE HYDROCHLORIDE
     Indication: Neuralgia
     Dosage: 20 MILLIGRAM, QD (DAY 3)
     Route: 048
  3. METHADONE [Suspect]
     Active Substance: METHADONE HYDROCHLORIDE
     Dosage: 40 MILLIGRAM, QD (DAY 4)
     Route: 048
  4. METHADONE [Suspect]
     Active Substance: METHADONE HYDROCHLORIDE
     Dosage: 50 MILLIGRAM, QD (DAY 10)
     Route: 048
  5. METHADONE [Suspect]
     Active Substance: METHADONE HYDROCHLORIDE
     Dosage: 30 MILLIGRAM, QD (DAY 12)
     Route: 048
  6. METHADONE [Suspect]
     Active Substance: METHADONE HYDROCHLORIDE
     Dosage: 30 MILLIGRAM, QD (DAY 16)
     Route: 048
  7. METHADONE [Suspect]
     Active Substance: METHADONE HYDROCHLORIDE
     Dosage: 10 MILLIGRAM, QD (POD 1)
     Route: 048
  8. METHADONE [Suspect]
     Active Substance: METHADONE HYDROCHLORIDE
     Dosage: 5 MILLIGRAM, QD (POD 2)
     Route: 048
  9. OXYCODONE [Suspect]
     Active Substance: OXYCODONE\OXYCODONE HYDROCHLORIDE
     Indication: Pain
     Dosage: UNK
     Route: 065
  10. OXYCODONE [Suspect]
     Active Substance: OXYCODONE\OXYCODONE HYDROCHLORIDE
     Indication: Neuralgia
  11. MORPHINE [Suspect]
     Active Substance: MORPHINE
     Indication: Pain
     Dosage: UNK
     Route: 048
  12. MORPHINE [Suspect]
     Active Substance: MORPHINE
     Indication: Neuralgia
  13. GABAPENTIN [Suspect]
     Active Substance: GABAPENTIN
     Indication: Pain
     Dosage: 2400 MILLIGRAM, QD (DAY 1)
     Route: 048
  14. GABAPENTIN [Suspect]
     Active Substance: GABAPENTIN
     Indication: Neuralgia
     Dosage: 1600 MILLIGRAM, QD (DAY 3)
     Route: 048
  15. GABAPENTIN [Suspect]
     Active Substance: GABAPENTIN
     Dosage: 1800 MILLIGRAM, QD (DAY 4)
     Route: 048
  16. GABAPENTIN [Suspect]
     Active Substance: GABAPENTIN
     Dosage: 1800 MILLIGRAM, QD (DAY 10)
     Route: 048
  17. GABAPENTIN [Suspect]
     Active Substance: GABAPENTIN
     Dosage: 1200 MILLIGRAM, QD (DAY 12)
     Route: 048
  18. GABAPENTIN [Suspect]
     Active Substance: GABAPENTIN
     Dosage: 1800 MILLIGRAM, QD (DAY 16)
     Route: 048
  19. GABAPENTIN [Suspect]
     Active Substance: GABAPENTIN
     Dosage: 1800 MILLIGRAM, QD (DAY 20)
     Route: 048
  20. GABAPENTIN [Suspect]
     Active Substance: GABAPENTIN
     Dosage: 1800 MILLIGRAM, QD (DAY 25)
     Route: 048
  21. GABAPENTIN [Suspect]
     Active Substance: GABAPENTIN
     Dosage: 1200 MILLIGRAM, QD (POD 1)
     Route: 048
  22. GABAPENTIN [Suspect]
     Active Substance: GABAPENTIN
     Dosage: 1800 MILLIGRAM, QD (POD 2)
     Route: 048
  23. GABAPENTIN [Suspect]
     Active Substance: GABAPENTIN
     Dosage: 1200 MILLIGRAM, QD (POD 3)
     Route: 048
  24. BACLOFEN [Suspect]
     Active Substance: BACLOFEN
     Indication: Pain
     Dosage: 15 MILLIGRAM, QD (DAY 1)
     Route: 048
  25. BACLOFEN [Suspect]
     Active Substance: BACLOFEN
     Indication: Neuralgia
     Dosage: 10 MILLIGRAM, QD (DAY 3)
     Route: 048
  26. BACLOFEN [Suspect]
     Active Substance: BACLOFEN
     Dosage: 15 MILLIGRAM, QD (DAY 4)
     Route: 048
  27. HYDROMORPHONE [Suspect]
     Active Substance: HYDROMORPHONE
     Indication: Pain
     Dosage: UNK
     Route: 037
  28. BUPIVACAINE [Suspect]
     Active Substance: BUPIVACAINE
     Indication: Pain
     Dosage: 4 MILLIGRAM, QD (DAY 1)
     Route: 037
  29. BUPIVACAINE [Suspect]
     Active Substance: BUPIVACAINE
     Dosage: 4 MILLIGRAM, QD (DAY 3)
     Route: 037
  30. BUPIVACAINE [Suspect]
     Active Substance: BUPIVACAINE
     Dosage: 4 MILLIGRAM, QD (DAY 4)
     Route: 037
  31. BUPIVACAINE [Suspect]
     Active Substance: BUPIVACAINE
     Dosage: 4 MILLIGRAM, QD (DAY 10)
     Route: 037
  32. BUPIVACAINE [Suspect]
     Active Substance: BUPIVACAINE
     Dosage: 4 MILLIGRAM, QD (DAY 12)
     Route: 037
  33. BUPIVACAINE [Suspect]
     Active Substance: BUPIVACAINE
     Dosage: 4 MILLIGRAM, QD (DAY 16)
     Route: 037
  34. BUPIVACAINE [Suspect]
     Active Substance: BUPIVACAINE
     Dosage: 4 MILLIGRAM, QD (DAY 20)
     Route: 037
  35. BUPIVACAINE [Suspect]
     Active Substance: BUPIVACAINE
     Dosage: 4 MILLIGRAM, QD (DAY 25)
     Route: 037
  36. BUPIVACAINE [Suspect]
     Active Substance: BUPIVACAINE
     Dosage: 2 MILLIGRAM, QD (POD 1)
     Route: 037
  37. BUPIVACAINE [Suspect]
     Active Substance: BUPIVACAINE
     Dosage: 1 MILLIGRAM, QD (POD 2)
     Route: 037
  38. BUPIVACAINE [Suspect]
     Active Substance: BUPIVACAINE
     Dosage: 1 MILLIGRAM, QD (POD 3)
     Route: 037
  39. MORPHINE [Suspect]
     Active Substance: MORPHINE
     Indication: Pain
     Dosage: UNK
     Route: 037
  40. MORPHINE [Suspect]
     Active Substance: MORPHINE
     Dosage: UNK (PATIENT CONTROLLED ANALGESIA)
     Route: 065
  41. KETAMINE [Suspect]
     Active Substance: KETAMINE
     Indication: Pain
     Dosage: 491 MILLIGRAM, QD (DAY 4)
     Route: 042
  42. KETAMINE [Suspect]
     Active Substance: KETAMINE
     Dosage: 491 MILLIGRAM, QD (DAY 10)
     Route: 042
  43. KETAMINE [Suspect]
     Active Substance: KETAMINE
     Dosage: 818 MILLIGRAM, QD (DAY 12)
     Route: 042
  44. KETAMINE [Suspect]
     Active Substance: KETAMINE
     Dosage: 818 MILLIGRAM, QD (DAY 16)
     Route: 042
  45. KETAMINE [Suspect]
     Active Substance: KETAMINE
     Dosage: 409 MILLIGRAM, QD (DAY 20)
     Route: 042
  46. METHADONE [Suspect]
     Active Substance: METHADONE HYDROCHLORIDE
     Indication: Pain
     Dosage: 20 MILLIGRAM, QD (DAY 25)
     Route: 042
  47. METHADONE [Suspect]
     Active Substance: METHADONE HYDROCHLORIDE
     Dosage: 10 MILLIGRAM, QD (POD 1)
     Route: 042
  48. TYLENOL [Suspect]
     Active Substance: ACETAMINOPHEN
     Indication: Pain
     Dosage: 500 MILLIGRAM, QD (DAY 20)
     Route: 048
  49. TYLENOL [Suspect]
     Active Substance: ACETAMINOPHEN
     Dosage: 500 MILLIGRAM, QD (POD 3)
     Route: 048
  50. SERTRALINE [Concomitant]
     Active Substance: SERTRALINE HYDROCHLORIDE
     Indication: Depression
     Dosage: UNK
     Route: 065
  51. OLANZAPINE [Concomitant]
     Active Substance: OLANZAPINE
     Indication: Depression
     Dosage: UNK
     Route: 065
  52. DOXORUBICIN [Concomitant]
     Active Substance: DOXORUBICIN
     Indication: Osteosarcoma
     Dosage: UNK
     Route: 065
  53. ZINECARD [Concomitant]
     Active Substance: DEXRAZOXANE HYDROCHLORIDE
     Indication: Product used for unknown indication
     Dosage: UNK
     Route: 065

REACTIONS (9)
  - Small intestinal obstruction [Unknown]
  - Aspiration [Unknown]
  - Small intestinal stenosis [Unknown]
  - Venous angioplasty [Unknown]
  - Cingulectomy [Unknown]
  - High frequency ablation [Unknown]
  - Neurosurgery [Unknown]
  - Lethargy [Unknown]
  - Drug ineffective [Unknown]
